FAERS Safety Report 6505331-7 (Version None)
Quarter: 2009Q4

REPORT INFORMATION
  Report Type: 
  Country: None (occurrence: None)
  Receive Date: 20091218
  Receipt Date: 20091210
  Transmission Date: 20100525
  Serious: Yes (Other)
  Sender: FDA-Public Use
  Company Number: DE-JNJFOC-20091204227

PATIENT

DRUGS (1)
  1. REMINYL STARTERPACKUNG [Suspect]
     Indication: DEMENTIA
     Dosage: 8 MG + 16 MG
     Route: 065

REACTIONS (3)
  - ACCIDENTAL EXPOSURE [None]
  - GASTROINTESTINAL DISORDER [None]
  - PRODUCT PACKAGING ISSUE [None]
